FAERS Safety Report 8363818-9 (Version None)
Quarter: 2012Q2

REPORT INFORMATION
  Report Type: 
  Country: None (occurrence: None)
  Receive Date: 20120516
  Receipt Date: 20120504
  Transmission Date: 20120825
  Serious: Yes (Hospitalization)
  Sender: FDA-Public Use
  Company Number: FR-CELGENEUS-056-21880-12050464

PATIENT
  Sex: Female
  Weight: 47 kg

DRUGS (7)
  1. DEXAMETHASONE [Suspect]
     Indication: MULTIPLE MYELOMA
     Route: 048
  2. REVLIMID [Suspect]
     Dosage: 15 MILLIGRAM
     Route: 048
     Dates: start: 20120402, end: 20120426
  3. ZOMETA [Concomitant]
     Dosage: 4 MILLIGRAM
     Route: 041
  4. ASPIRIN [Concomitant]
     Indication: PROPHYLAXIS
     Route: 065
  5. NASAL HUMIDIFICATION [Concomitant]
     Route: 048
  6. REVLIMID [Suspect]
     Indication: MULTIPLE MYELOMA
     Dosage: 25 MILLIGRAM
     Route: 048
     Dates: start: 20110710
  7. AUGMENTIN [Concomitant]
     Indication: ANTI-INFECTIVE THERAPY
     Route: 048

REACTIONS (1)
  - GENERAL PHYSICAL CONDITION ABNORMAL [None]
